FAERS Safety Report 25074621 (Version 1)
Quarter: 2025Q1

REPORT INFORMATION
  Report Type: Spontaneous
  Country: US (occurrence: US)
  Receive Date: 20250313
  Receipt Date: 20250313
  Transmission Date: 20250409
  Serious: Yes (Hospitalization, Other)
  Sender: OTSUKA
  Company Number: US-MMM-Otsuka-JLNQ84GK

PATIENT
  Sex: Male
  Weight: 107.05 kg

DRUGS (7)
  1. ABILIFY [Suspect]
     Active Substance: ARIPIPRAZOLE
     Indication: Bipolar disorder
     Route: 048
  2. ABILIFY [Suspect]
     Active Substance: ARIPIPRAZOLE
     Route: 065
  3. ARIPIPRAZOLE [Suspect]
     Active Substance: ARIPIPRAZOLE
     Indication: Bipolar disorder
     Route: 065
  4. HALDOL [Suspect]
     Active Substance: HALOPERIDOL
     Indication: Bipolar disorder
     Route: 065
  5. DEPAKOTE [Concomitant]
     Active Substance: DIVALPROEX SODIUM
     Indication: Product used for unknown indication
     Route: 048
  6. IRON [Concomitant]
     Active Substance: IRON
     Indication: Product used for unknown indication
     Route: 065
  7. VITAMINS NOS [Concomitant]
     Active Substance: VITAMINS
     Indication: Product used for unknown indication
     Dosage: UNK UNK, QD
     Route: 065

REACTIONS (13)
  - Dehydration [Unknown]
  - Renal failure [Unknown]
  - Atrial fibrillation [Unknown]
  - Type 2 diabetes mellitus [Not Recovered/Not Resolved]
  - Weight abnormal [Unknown]
  - Brain fog [Unknown]
  - Sexual dysfunction [Unknown]
  - Memory impairment [Unknown]
  - Tremor [Unknown]
  - Bankruptcy [Unknown]
  - Homeless [Unknown]
  - Insurance issue [Unknown]
  - Drug effect less than expected [Unknown]

NARRATIVE: CASE EVENT DATE: 20240101
